FAERS Safety Report 7276208-7 (Version None)
Quarter: 2011Q1

REPORT INFORMATION
  Report Type: 
  Country: None (occurrence: None)
  Receive Date: 20110204
  Receipt Date: 20110127
  Transmission Date: 20110831
  Serious: Yes (Hospitalization, Other)
  Sender: FDA-Public Use
  Company Number: PHHO2011GB02340

PATIENT
  Sex: Male
  Weight: 73.9 kg

DRUGS (7)
  1. DOCETAXEL [Suspect]
     Indication: SQUAMOUS CELL CARCINOMA
     Dosage: 60 MG/M2, UNK
     Route: 048
     Dates: start: 20101207
  2. AFINITOR [Suspect]
     Indication: SQUAMOUS CELL CARCINOMA
     Dosage: 10 MG, QW
     Route: 048
     Dates: start: 20101207
  3. CODEINE SULFATE [Concomitant]
     Indication: PAIN
  4. BENDROFLUMETHIAZIDE [Concomitant]
     Indication: ESSENTIAL HYPERTENSION
  5. PARACETAMOL [Concomitant]
     Indication: PAIN
  6. PRAVASTATIN [Concomitant]
     Indication: HYPERCHOLESTEROLAEMIA
  7. SUCCINYLATED GELATIN [Concomitant]
     Indication: HYPOTENSION

REACTIONS (4)
  - PYREXIA [None]
  - SPUTUM INCREASED [None]
  - BLOOD PRESSURE DECREASED [None]
  - INFECTION [None]
